FAERS Safety Report 10032776 (Version 1)
Quarter: 2014Q1

REPORT INFORMATION
  Report Type: Spontaneous
  Country: US (occurrence: US)
  Receive Date: 20140324
  Receipt Date: 20140324
  Transmission Date: 20141002
  Serious: Yes (Other)
  Sender: FDA-Public Use
  Company Number: US-BAYER-2014-038979

PATIENT
  Sex: Female

DRUGS (1)
  1. PHILLIPS^ MILK OF MAGNESIA LIQUID ORIGINAL [Suspect]
     Dosage: 1 DF QD

REACTIONS (2)
  - Feeling abnormal [None]
  - Depression suicidal [None]
